FAERS Safety Report 11808680 (Version 1)
Quarter: 2015Q4

REPORT INFORMATION
  Report Type: Spontaneous
  Country: US (occurrence: US)
  Receive Date: 20151207
  Receipt Date: 20151207
  Transmission Date: 20160305
  Serious: No
  Sender: FDA-Public Use
  Company Number: US-ROCHE-1630794

PATIENT
  Sex: Female

DRUGS (10)
  1. WARFARIN [Concomitant]
     Active Substance: WARFARIN
  2. SIMVASTATIN. [Concomitant]
     Active Substance: SIMVASTATIN
  3. LUCENTIS [Suspect]
     Active Substance: RANIBIZUMAB
     Indication: PRODUCT USED FOR UNKNOWN INDICATION
     Dosage: RIGHT EYE
     Route: 050
  4. TOPIRAMATE. [Concomitant]
     Active Substance: TOPIRAMATE
  5. TIROSINT [Concomitant]
     Active Substance: LEVOTHYROXINE SODIUM
  6. LANTUS [Concomitant]
     Active Substance: INSULIN GLARGINE
  7. LABETALOL [Concomitant]
     Active Substance: LABETALOL\LABETALOL HYDROCHLORIDE
  8. GABAPENTIN. [Concomitant]
     Active Substance: GABAPENTIN
  9. EYLEA [Suspect]
     Active Substance: AFLIBERCEPT
     Indication: DIABETIC RETINAL OEDEMA
     Dosage: LEFT EYE
     Route: 050
     Dates: start: 20150727
  10. MONTELUKAST [Concomitant]
     Active Substance: MONTELUKAST SODIUM

REACTIONS (1)
  - Eye pain [Unknown]
